FAERS Safety Report 7465036-5 (Version None)
Quarter: 2011Q2

REPORT INFORMATION
  Report Type: 
  Country: None (occurrence: None)
  Receive Date: 20110505
  Receipt Date: 20110505
  Transmission Date: 20111010
  Serious: Yes (Other)
  Sender: FDA-Public Use
  Company Number: None

PATIENT
  Age: 55 Year
  Sex: Female
  Weight: 72.58 kg

DRUGS (1)
  1. NEULASTA [Suspect]
     Indication: ADENOCARCINOMA
     Dosage: 6MG ONCE SUBCUTANEOUS INJECTION
     Route: 058
     Dates: start: 20110407

REACTIONS (2)
  - FLUSHING [None]
  - BURNING SENSATION [None]
